FAERS Safety Report 15402506 (Version 3)
Quarter: 2020Q3

REPORT INFORMATION
  Report Type: Report from Study
  Country: JP (occurrence: JP)
  Receive Date: 20180919
  Receipt Date: 20190506
  Transmission Date: 20201105
  Serious: No
  Sender: FDA-Public Use
  Company Number: JP-ROCHE-2184896

PATIENT
  Sex: Female

DRUGS (1)
  1. IBANDRONIC ACID. [Suspect]
     Active Substance: IBANDRONIC ACID
     Indication: OSTEOPOROSIS POSTMENOPAUSAL
     Route: 048
     Dates: start: 20170720, end: 20171108

REACTIONS (1)
  - Blood creatinine increased [Recovering/Resolving]
